FAERS Safety Report 7948180-5 (Version None)
Quarter: 2011Q4

REPORT INFORMATION
  Report Type: 
  Country: None (occurrence: None)
  Receive Date: 20111125
  Receipt Date: 20111117
  Transmission Date: 20120403
  Serious: Yes (Other)
  Sender: FDA-Public Use
  Company Number: 1000025624

PATIENT
  Age: 20 Year
  Sex: Male

DRUGS (4)
  1. COGENTIN (BENZATROPINE MESILATE) (BENZATROPINE MESILATE) [Concomitant]
  2. NAMENDA [Suspect]
     Indication: OBSESSIVE-COMPULSIVE DISORDER
     Dosage: 5 MG (5 MG,1 IN 1 D),ORAL
     Route: 048
     Dates: start: 20111101
  3. PROZAC (FLUOXETINE HYDROCHLORIDE HYDROCHLORIDE) (FLUOXETINE HYDROCHLOR [Concomitant]
  4. ABILIFY (ARIPIPRAZOLE) (ARIPIPRAZOLE) [Concomitant]

REACTIONS (2)
  - OFF LABEL USE [None]
  - RECTAL HAEMORRHAGE [None]
